FAERS Safety Report 12467363 (Version 1)
Quarter: 2016Q2

REPORT INFORMATION
  Report Type: Spontaneous
  Country: US (occurrence: None)
  Receive Date: 20160614
  Receipt Date: 20160614
  Transmission Date: 20160815
  Serious: Yes (Other)
  Sender: FDA-Public Use
  Company Number: None

PATIENT
  Age: 57 Year
  Sex: Female
  Weight: 45.36 kg

DRUGS (11)
  1. EFFEXOR [Concomitant]
     Active Substance: VENLAFAXINE HYDROCHLORIDE
  2. SYNTHROID [Concomitant]
     Active Substance: LEVOTHYROXINE SODIUM
  3. TRAZODONE [Concomitant]
     Active Substance: TRAZODONE HYDROCHLORIDE
  4. METHYLENE BLUE. [Suspect]
     Active Substance: METHYLENE BLUE
     Indication: SCAN
     Route: 058
     Dates: start: 20160609, end: 20160609
  5. XANAX [Concomitant]
     Active Substance: ALPRAZOLAM
  6. CALCIUM [Concomitant]
     Active Substance: CALCIUM
  7. VITAMIN D [Concomitant]
     Active Substance: CHOLECALCIFEROL
  8. IBUPROFEN. [Concomitant]
     Active Substance: IBUPROFEN
  9. MULTIVIT [Concomitant]
     Active Substance: VITAMINS
  10. NEURONTIN [Concomitant]
     Active Substance: GABAPENTIN
  11. VITAMIN C [Concomitant]
     Active Substance: ASCORBIC ACID

REACTIONS (5)
  - Necrosis [None]
  - Inflammation [None]
  - Peripheral swelling [None]
  - Injection site vesicles [None]
  - Tenderness [None]

NARRATIVE: CASE EVENT DATE: 20160611
